FAERS Safety Report 13747042 (Version 1)
Quarter: 2017Q3

REPORT INFORMATION
  Report Type: Spontaneous
  Country: US (occurrence: US)
  Receive Date: 20170712
  Receipt Date: 20170712
  Transmission Date: 20171127
  Serious: No
  Sender: FDA-Public Use
  Company Number: US-PFIZER INC-2017303569

PATIENT
  Age: 48 Year
  Sex: Male
  Weight: 106.59 kg

DRUGS (1)
  1. VIAGRA [Suspect]
     Active Substance: SILDENAFIL CITRATE
     Dosage: 25MG ONE TIME A NIGHT
     Dates: start: 201703

REACTIONS (2)
  - Erection increased [Unknown]
  - Ejaculation disorder [Unknown]
